FAERS Safety Report 6305663-1 (Version None)
Quarter: 2009Q3

REPORT INFORMATION
  Report Type: 
  Country: None (occurrence: None)
  Receive Date: 20090807
  Receipt Date: 20090728
  Transmission Date: 20100115
  Serious: Yes (Hospitalization)
  Sender: FDA-Public Use
  Company Number: SPV1-2009-01127

PATIENT
  Age: 14 Year
  Sex: Male
  Weight: 75 kg

DRUGS (4)
  1. ELAPRASE [Suspect]
     Indication: MUCOPOLYSACCHARIDOSIS II
     Dosage: 30 MG, 1X/WEEK, IV DRIP
     Route: 041
     Dates: start: 20031017
  2. HEPARIN LOCK-FLUSH [Concomitant]
  3. LMX (LIDOCAINE) [Concomitant]
  4. ENALAPRIL MALEATE [Concomitant]

REACTIONS (1)
  - GASTROENTERITIS VIRAL [None]
